FAERS Safety Report 7943951-3 (Version None)
Quarter: 2011Q4

REPORT INFORMATION
  Report Type: 
  Country: None (occurrence: None)
  Receive Date: 20111128
  Receipt Date: 20111116
  Transmission Date: 20120403
  Serious: Yes (Other)
  Sender: FDA-Public Use
  Company Number: US-ASTRAZENECA-2009UW13919

PATIENT
  Age: 42 Year
  Sex: Female
  Weight: 101.2 kg

DRUGS (6)
  1. STRATTERA [Concomitant]
  2. SEROQUEL [Suspect]
     Dosage: FOUR TABLET
     Route: 048
  3. WELLBUTRIN [Concomitant]
  4. SEROQUEL [Suspect]
     Route: 048
  5. CLONIDINE [Concomitant]
  6. SEROQUEL [Suspect]
     Indication: BIPOLAR DISORDER
     Route: 048

REACTIONS (3)
  - HEADACHE [None]
  - MYOCARDIAL INFARCTION [None]
  - VISION BLURRED [None]
